FAERS Safety Report 10187491 (Version 1)
Quarter: 2014Q2

REPORT INFORMATION
  Report Type: Spontaneous
  Country: US (occurrence: US)
  Receive Date: 20140522
  Receipt Date: 20140522
  Transmission Date: 20141212
  Serious: No
  Sender: FDA-Public Use
  Company Number: US-SANOFI-AVENTIS-2013SA080572

PATIENT
  Sex: Male

DRUGS (1)
  1. LANTUS [Suspect]
     Route: 058

REACTIONS (6)
  - Somnolence [Unknown]
  - Dizziness [Unknown]
  - Balance disorder [Unknown]
  - Sensory loss [Unknown]
  - Nervousness [Unknown]
  - Asthenia [Unknown]
